FAERS Safety Report 5003756-2 (Version None)
Quarter: 2006Q2

REPORT INFORMATION
  Report Type: 
  Country: None (occurrence: None)
  Receive Date: 20060511
  Receipt Date: 20060504
  Transmission Date: 20061013
  Serious: Yes (Hospitalization)
  Sender: FDA-Public Use
  Company Number: 218341

PATIENT
  Age: 50 Year
  Sex: Female
  Weight: 75 kg

DRUGS (6)
  1. MABTHERA (RITUXIMAB) CONC FOR SOLUTION FOR INFUSION [Suspect]
     Indication: DRUG USE FOR UNKNOWN INDICATION
     Dosage: 3 MG, QD, INTRAVENOUS
     Route: 042
     Dates: start: 20050725, end: 20050729
  2. DEXAMETHASONE [Suspect]
     Indication: DRUG USE FOR UNKNOWN INDICATION
     Dosage: 40 MG,QD, INTRAVENOUS
     Route: 042
     Dates: start: 20050725, end: 20050729
  3. CISPLATIN [Suspect]
     Indication: DRUG USE FOR UNKNOWN INDICATION
     Dosage: 47.7 MG,QD, INTRAVENOUS
     Route: 042
     Dates: start: 20050725, end: 20050729
  4. VEPESID [Suspect]
     Indication: DRUG USE FOR UNKNOWN INDICATION
     Dosage: 68.4 MG,QD INTRAVENOUS
     Route: 042
     Dates: start: 20050725, end: 20050729
  5. CYTARABINE [Suspect]
     Indication: DRUG USE FOR UNKNOWN INDICATION
     Dosage: 3420 MG
     Dates: start: 20050729, end: 20050729
  6. KYTRIL [Suspect]
     Indication: DRUG USE FOR UNKNOWN INDICATION
     Dosage: 3 MG,QD, INTRAVENOUS
     Route: 042
     Dates: start: 20050725, end: 20050729

REACTIONS (1)
  - AGRANULOCYTOSIS [None]
